FAERS Safety Report 9236150 (Version 3)
Quarter: 2013Q3

REPORT INFORMATION
  Report Type: Spontaneous
  Country: US (occurrence: US)
  Receive Date: 20130417
  Receipt Date: 20130719
  Transmission Date: 20140515
  Serious: No
  Sender: FDA-Public Use
  Company Number: US-009507513-1304USA008046

PATIENT
  Sex: Male

DRUGS (4)
  1. VICTRELIS [Suspect]
     Indication: HEPATITIS C
     Dosage: 800 MG, TID
     Route: 048
     Dates: start: 20130218
  2. PEGASYS [Suspect]
     Dosage: UNK
  3. RIBAPAK [Suspect]
     Dosage: UNK
  4. PROCRIT [Concomitant]
     Dosage: UNK

REACTIONS (2)
  - Hepatitis C [Unknown]
  - Anaemia [Unknown]
